FAERS Safety Report 9238200 (Version 1)
Quarter: 2013Q1

REPORT INFORMATION
  Report Type: Spontaneous
  Country: US (occurrence: None)
  Receive Date: 20121107
  Receipt Date: 20121107
  Transmission Date: 20140127
  Serious: No
  Sender: FDA-Public Use
  Company Number: 2012HGS-003805

PATIENT
  Age: 46 Year
  Sex: Female
  Weight: 77.11 kg

DRUGS (12)
  1. BENLYSTA [Suspect]
     Indication: SYSTEMIC LUPUS ERYTHEMATOSUS
     Dosage: 1 IN 28 D
     Route: 041
     Dates: start: 20120707
  2. PREDNISONE (PRERDNISONE) (PREDNISONE) [Concomitant]
  3. PLAQUENIL (HYDROXYCHLOROQUINE SULFATE) (HYDROXYCHLOROQUINE SULFATE) [Concomitant]
  4. METHOTREXATE (METHOTREXATE SODIUM) (METHOTREXATE SODIUM) [Concomitant]
  5. FENTANYL PATCH (FENTANYL) (FENTANYL) [Concomitant]
  6. ZANAFLEX (TIZANIDINE HYDROCHLORIDE) (TIZANIDINE HYDROCHLORIDE) [Concomitant]
  7. XANAX XR (ALPRAZOLAM) (ALPRAZOLAM) [Concomitant]
  8. PERCOCET (TYLOX/00446701/ (PARACETAMOL, OXYCODONE HYDROCHLORIDE, OXYCODONE TEREPHTHALATE) [Concomitant]
  9. CLONIDINE (CLONIDINE) (CLONIDINE) [Concomitant]
  10. TOPAMAX (TOPIRAMATE) (TOPIRAMATE) [Concomitant]
  11. SAVELLA (MILNACIPRAN HYDROCHLORIDE) (MILNACIPRAN HYDROCHLORIDE) [Concomitant]
  12. POTASSIUM (POTASSIUM) (POTASSIUM) [Concomitant]

REACTIONS (6)
  - Systemic lupus erythematosus [None]
  - Oedema peripheral [None]
  - Arthralgia [None]
  - Chills [None]
  - Throat irritation [None]
  - Migraine [None]
